FAERS Safety Report 5078700-2 (Version None)
Quarter: 2006Q3

REPORT INFORMATION
  Report Type: 
  Country: None (occurrence: None)
  Receive Date: 20060808
  Receipt Date: 20060728
  Transmission Date: 20061208
  Serious: Yes (Hospitalization)
  Sender: FDA-Public Use
  Company Number: 2006SP002835

PATIENT
  Age: 82 Year
  Sex: Female
  Weight: 47.1741 kg

DRUGS (4)
  1. XOPENEX [Suspect]
     Indication: BRONCHITIS
     Dosage: 1.25 MG/3ML; Q8H; INHALATION; .63 MG/3ML; Q4H; INHALATION
     Route: 055
     Dates: start: 20060101, end: 20060727
  2. XOPENEX [Suspect]
     Indication: BRONCHITIS
     Dosage: 1.25 MG/3ML; Q8H; INHALATION; .63 MG/3ML; Q4H; INHALATION
     Route: 055
     Dates: start: 20060727
  3. OMNICEF [Concomitant]
  4. ZOLOFT [Concomitant]

REACTIONS (5)
  - DYSPNOEA [None]
  - JOINT SWELLING [None]
  - OXYGEN SATURATION DECREASED [None]
  - REFUSAL OF TREATMENT BY PATIENT [None]
  - TREMOR [None]
